FAERS Safety Report 9777516 (Version 2)
Quarter: 2014Q1

REPORT INFORMATION
  Report Type: Report from Study
  Country: GB (occurrence: GB)
  Receive Date: 20131222
  Receipt Date: 20140317
  Transmission Date: 20141002
  Serious: Yes (Other)
  Sender: FDA-Public Use
  Company Number: PHFR2013GB007241

PATIENT
  Age: 43 Year
  Sex: Female

DRUGS (3)
  1. GILENYA [Suspect]
     Indication: MULTIPLE SCLEROSIS
     Dosage: 0.5 MG, QD
     Route: 048
     Dates: start: 20131217
  2. VITAMIN B12 [Concomitant]
  3. COD LIVER OIL [Concomitant]

REACTIONS (2)
  - Sensation of heaviness [Recovering/Resolving]
  - Bradycardia [Recovered/Resolved]
